FAERS Safety Report 15137664 (Version 4)
Quarter: 2018Q3

REPORT INFORMATION
  Report Type: Report from Study
  Country: MX (occurrence: MX)
  Receive Date: 20180712
  Receipt Date: 20180815
  Transmission Date: 20181010
  Serious: Yes (Hospitalization, Other)
  Sender: FDA-Public Use
  Company Number: MX-TAKEDA-2018TUS021973

PATIENT
  Age: 16 Year
  Sex: Female
  Weight: 78.6 kg

DRUGS (2)
  1. VORTIOXETINE. [Suspect]
     Active Substance: VORTIOXETINE
     Indication: MAJOR DEPRESSION
     Dosage: UNK
     Route: 065
     Dates: start: 20180531, end: 20180708
  2. VORTIOXETINE. [Suspect]
     Active Substance: VORTIOXETINE
     Dosage: OVERDOSE: APPROXIMATELY 8 TABLETS
     Route: 065
     Dates: start: 20180709, end: 20180709

REACTIONS (1)
  - Intentional overdose [Recovered/Resolved]

NARRATIVE: CASE EVENT DATE: 20180709
